FAERS Safety Report 4481462-0 (Version None)
Quarter: 2004Q3

REPORT INFORMATION
  Report Type: 
  Country: None (occurrence: None)
  Receive Date: 20040923
  Receipt Date: 20040610
  Transmission Date: 20050211
  Serious: No
  Sender: FDA-Public Use
  Company Number: USA040669909

PATIENT
  Age: 57 Year
  Sex: Female

DRUGS (4)
  1. FORTEO [Suspect]
     Indication: OSTEOPOROSIS
     Dates: start: 20040603
  2. CORTISONE ACETATE [Concomitant]
  3. SYNTHROID [Concomitant]
  4. DDAVP [Concomitant]

REACTIONS (3)
  - ARTHRALGIA [None]
  - BURNING SENSATION [None]
  - SLEEP DISORDER [None]
